FAERS Safety Report 4746498-0 (Version None)
Quarter: 2005Q3

REPORT INFORMATION
  Report Type: 
  Country: None (occurrence: None)
  Receive Date: 20050817
  Receipt Date: 20050804
  Transmission Date: 20060218
  Serious: Yes (Hospitalization)
  Sender: FDA-Public Use
  Company Number: US-AMGEN-US145697

PATIENT
  Sex: Male

DRUGS (14)
  1. CINACALCET [Suspect]
     Indication: HYPERPARATHYROIDISM SECONDARY
     Route: 048
     Dates: start: 20050519
  2. ALLOPURINOL [Suspect]
     Route: 048
     Dates: start: 20050720
  3. ASPIRIN [Concomitant]
     Route: 048
     Dates: start: 20040101
  4. BENICAR [Concomitant]
     Route: 048
     Dates: start: 20020101
  5. CLONIDINE [Concomitant]
     Route: 048
     Dates: start: 20020101
  6. HYDROCHLOROTHIAZIDE [Concomitant]
     Route: 048
     Dates: start: 20020101
  7. LIPITOR [Concomitant]
     Route: 048
     Dates: start: 20040101
  8. NORVASC [Concomitant]
     Route: 048
     Dates: start: 20020101
  9. NOVOLIN 70/30 [Concomitant]
     Route: 058
     Dates: start: 19930101
  10. AVELOX [Concomitant]
     Route: 048
     Dates: start: 20050622, end: 20050701
  11. TYLENOL W/ CODEINE [Concomitant]
     Dates: start: 20050622, end: 20050701
  12. LEVAQUIN [Concomitant]
     Dates: start: 20050629
  13. NAPROXEN [Concomitant]
     Dates: start: 20050621
  14. RENAGEL [Concomitant]
     Dates: start: 20050301

REACTIONS (2)
  - BACTERIAL INFECTION [None]
  - GOUTY ARTHRITIS [None]
